FAERS Safety Report 6312386-1 (Version None)
Quarter: 2009Q3

REPORT INFORMATION
  Report Type: 
  Country: None (occurrence: None)
  Receive Date: 20090813
  Receipt Date: 20090803
  Transmission Date: 20100115
  Serious: Yes (Hospitalization)
  Sender: FDA-Public Use
  Company Number: VISP-NO-0906S-0280

PATIENT
  Age: 31 Year
  Sex: Female

DRUGS (1)
  1. VISIPAQUE [Suspect]
     Indication: VENOUS INSUFFICIENCY
     Dosage: 70 ML, SINGLE DOSE, I.V.
     Route: 042
     Dates: start: 20090430, end: 20090430

REACTIONS (4)
  - AMMONIA INCREASED [None]
  - ERYTHEMA MULTIFORME [None]
  - HEPATIC FUNCTION ABNORMAL [None]
  - STAPHYLOCOCCAL INFECTION [None]
